FAERS Safety Report 6739606-3 (Version None)
Quarter: 2010Q2

REPORT INFORMATION
  Report Type: 
  Country: None (occurrence: None)
  Receive Date: 20100525
  Receipt Date: 20100505
  Transmission Date: 20101027
  Serious: No
  Sender: FDA-Public Use
  Company Number: US-B.I. PHARMACEUTICALS,INC./RIDGEFIELD-2010-BP-05175BP

PATIENT
  Age: 59 Year
  Sex: Male

DRUGS (2)
  1. FLOMAX [Suspect]
     Indication: PROSTATE CANCER
     Dosage: 0.4 MG
     Route: 048
     Dates: start: 20100412
  2. ADH [Concomitant]
     Indication: DIABETES INSIPIDUS

REACTIONS (2)
  - MICTURITION URGENCY [None]
  - RHINORRHOEA [None]
